FAERS Safety Report 7118465-3 (Version None)
Quarter: 2010Q4

REPORT INFORMATION
  Report Type: 
  Country: None (occurrence: None)
  Receive Date: 20101021
  Receipt Date: 20091015
  Transmission Date: 20110411
  Serious: Yes (Other)
  Sender: FDA-Public Use
  Company Number: 2009BH016036

PATIENT
  Age: 42 Year
  Sex: Female

DRUGS (15)
  1. GAMMAGARD LIQUID [Suspect]
     Indication: OFF LABEL USE
     Dosage: 15 GM;EVERY WEEK;IV
     Route: 042
     Dates: start: 20091009
  2. GAMMAGARD LIQUID [Suspect]
     Indication: POLYNEUROPATHY
     Dosage: 15 GM;EVERY WEEK;IV
     Route: 042
     Dates: start: 20091009
  3. GAMMAGARD LIQUID [Suspect]
  4. ZONISAMIDE [Concomitant]
  5. ESZOPICLONE [Concomitant]
  6. POTASSIUM CHLORIDE [Concomitant]
  7. BIAXIN [Concomitant]
  8. ACETAMINOPHEN [Concomitant]
  9. TEMAZEPAM [Concomitant]
  10. MECLIZINE [Concomitant]
  11. COMPAZINE [Concomitant]
  12. DIPHENHYDRAMINE [Concomitant]
  13. METHOTREXATE [Concomitant]
  14. METHYLPREDNISOLONE [Concomitant]
  15. NEURONTIN [Concomitant]

REACTIONS (5)
  - CHILLS [None]
  - INFLUENZA LIKE ILLNESS [None]
  - PAIN [None]
  - SERUM SICKNESS [None]
  - TREMOR [None]
